FAERS Safety Report 22956164 (Version 6)
Quarter: 2025Q2

REPORT INFORMATION
  Report Type: Spontaneous
  Country: US (occurrence: US)
  Receive Date: 20230919
  Receipt Date: 20250408
  Transmission Date: 20250717
  Serious: Yes (Other)
  Sender: CSL BEHRING
  Company Number: US-BEH-2023163216

PATIENT
  Age: 12 Year
  Sex: Male

DRUGS (24)
  1. IDELVION [Suspect]
     Active Substance: COAGULATION FACTOR IX RECOMBINANT HUMAN
     Indication: Factor IX deficiency
     Dosage: 5750 INTERNATIONAL UNIT, QW
     Route: 042
     Dates: start: 201907
  2. IDELVION [Suspect]
     Active Substance: COAGULATION FACTOR IX RECOMBINANT HUMAN
     Indication: Factor IX deficiency
     Dosage: 5750 INTERNATIONAL UNIT, QW
     Route: 042
     Dates: start: 201907
  3. IDELVION [Suspect]
     Active Substance: COAGULATION FACTOR IX RECOMBINANT HUMAN
     Indication: Haemarthrosis
     Route: 042
  4. IDELVION [Suspect]
     Active Substance: COAGULATION FACTOR IX RECOMBINANT HUMAN
     Indication: Haemarthrosis
     Route: 042
  5. IDELVION [Suspect]
     Active Substance: COAGULATION FACTOR IX RECOMBINANT HUMAN
     Indication: Haemorrhage
     Dosage: 6300 INTERNATIONAL UNIT, QW
     Route: 042
     Dates: start: 202212
  6. IDELVION [Suspect]
     Active Substance: COAGULATION FACTOR IX RECOMBINANT HUMAN
     Indication: Haemorrhage
     Dosage: 6300 INTERNATIONAL UNIT, QW
     Route: 042
     Dates: start: 202212
  7. IDELVION [Suspect]
     Active Substance: COAGULATION FACTOR IX RECOMBINANT HUMAN
     Route: 065
     Dates: start: 202401
  8. IDELVION [Suspect]
     Active Substance: COAGULATION FACTOR IX RECOMBINANT HUMAN
     Route: 065
     Dates: start: 202401
  9. IDELVION [Suspect]
     Active Substance: COAGULATION FACTOR IX RECOMBINANT HUMAN
     Route: 065
     Dates: start: 20240228
  10. IDELVION [Suspect]
     Active Substance: COAGULATION FACTOR IX RECOMBINANT HUMAN
     Route: 065
     Dates: start: 20240228
  11. IDELVION [Suspect]
     Active Substance: COAGULATION FACTOR IX RECOMBINANT HUMAN
     Dosage: 6300 IU, QW
     Route: 042
     Dates: start: 201907
  12. IDELVION [Suspect]
     Active Substance: COAGULATION FACTOR IX RECOMBINANT HUMAN
     Dosage: 6300 IU, QW
     Route: 042
     Dates: start: 201907
  13. IDELVION [Suspect]
     Active Substance: COAGULATION FACTOR IX RECOMBINANT HUMAN
     Route: 042
     Dates: start: 20240401
  14. IDELVION [Suspect]
     Active Substance: COAGULATION FACTOR IX RECOMBINANT HUMAN
     Route: 042
     Dates: start: 20240401
  15. IDELVION [Suspect]
     Active Substance: COAGULATION FACTOR IX RECOMBINANT HUMAN
     Indication: Factor IX deficiency
     Dosage: 5750 INTERNATIONAL UNIT, QW
     Route: 042
     Dates: start: 201907
  16. IDELVION [Suspect]
     Active Substance: COAGULATION FACTOR IX RECOMBINANT HUMAN
     Indication: Factor IX deficiency
     Dosage: 5750 INTERNATIONAL UNIT, QW
     Route: 042
     Dates: start: 201907
  17. IDELVION [Suspect]
     Active Substance: COAGULATION FACTOR IX RECOMBINANT HUMAN
     Indication: Haemarthrosis
     Route: 042
  18. IDELVION [Suspect]
     Active Substance: COAGULATION FACTOR IX RECOMBINANT HUMAN
     Indication: Haemarthrosis
     Route: 042
  19. IDELVION [Suspect]
     Active Substance: COAGULATION FACTOR IX RECOMBINANT HUMAN
     Indication: Haemorrhage
     Dosage: 6300 INTERNATIONAL UNIT, QW
     Route: 042
     Dates: start: 202212
  20. IDELVION [Suspect]
     Active Substance: COAGULATION FACTOR IX RECOMBINANT HUMAN
     Indication: Haemorrhage
     Dosage: 6300 INTERNATIONAL UNIT, QW
     Route: 042
     Dates: start: 202212
  21. IDELVION [Suspect]
     Active Substance: COAGULATION FACTOR IX RECOMBINANT HUMAN
     Route: 065
     Dates: start: 202401
  22. IDELVION [Suspect]
     Active Substance: COAGULATION FACTOR IX RECOMBINANT HUMAN
     Route: 065
     Dates: start: 202401
  23. IDELVION [Suspect]
     Active Substance: COAGULATION FACTOR IX RECOMBINANT HUMAN
     Dosage: 7200 IU, QW
     Route: 042
     Dates: start: 201907
  24. IDELVION [Suspect]
     Active Substance: COAGULATION FACTOR IX RECOMBINANT HUMAN
     Dosage: 7200 IU, QW
     Route: 042
     Dates: start: 201907

REACTIONS (10)
  - Haemarthrosis [Unknown]
  - Haemorrhage [Unknown]
  - Haemorrhage [Recovered/Resolved]
  - Haemarthrosis [Unknown]
  - Haemorrhage [Unknown]
  - Femur fracture [Unknown]
  - Haemarthrosis [Not Recovered/Not Resolved]
  - Contusion [Recovered/Resolved]
  - Fall [Unknown]
  - Intentional product misuse [Unknown]

NARRATIVE: CASE EVENT DATE: 20240130
